FAERS Safety Report 5571075-1 (Version None)
Quarter: 2007Q4

REPORT INFORMATION
  Report Type: 
  Country: None (occurrence: None)
  Receive Date: 20071219
  Receipt Date: 20071213
  Transmission Date: 20080405
  Serious: Yes (Other)
  Sender: FDA-Public Use
  Company Number: 021646

PATIENT
  Age: 26 Year
  Sex: Female

DRUGS (8)
  1. WARFARIN SODIUM [Suspect]
     Indication: PROPHYLAXIS
     Dosage: 5 MG, QD, ORAL
     Route: 048
     Dates: start: 20070601
  2. CLONAZEPAM [Concomitant]
  3. TRILEPTAL [Concomitant]
  4. ZONEGRAN [Concomitant]
  5. DEPAKOTE [Concomitant]
  6. DIASTAT [Concomitant]
  7. FOSAMAX [Concomitant]
  8. ZYPREXA [Concomitant]

REACTIONS (1)
  - CONVULSION [None]
